FAERS Safety Report 8153976-3 (Version None)
Quarter: 2012Q1

REPORT INFORMATION
  Report Type: 
  Country: None (occurrence: None)
  Receive Date: 20120221
  Receipt Date: 20120221
  Transmission Date: 20120608
  Serious: Yes (Hospitalization)
  Sender: FDA-Public Use
  Company Number: None

PATIENT
  Age: 46 Year
  Sex: Male
  Weight: 108.86 kg

DRUGS (1)
  1. ZYPREXA RELPREVV [Suspect]
     Indication: SCHIZOPHRENIA
     Dosage: 300MG
     Route: 030
     Dates: start: 20120207, end: 20120208

REACTIONS (10)
  - AGITATION [None]
  - PSYCHOMOTOR HYPERACTIVITY [None]
  - DISTURBANCE IN ATTENTION [None]
  - DELIRIUM [None]
  - AGGRESSION [None]
  - SEDATION [None]
  - ABNORMAL BEHAVIOUR [None]
  - CONFUSIONAL STATE [None]
  - ANXIETY [None]
  - INSOMNIA [None]
